FAERS Safety Report 25335017 (Version 1)
Quarter: 2025Q2

REPORT INFORMATION
  Report Type: Report from Study
  Country: US (occurrence: US)
  Receive Date: 20250520
  Receipt Date: 20250520
  Transmission Date: 20250716
  Serious: Yes (Other)
  Sender: ABBVIE
  Company Number: US-ABBVIE-6281168

PATIENT
  Sex: Male

DRUGS (1)
  1. CREON [Suspect]
     Active Substance: PANCRELIPASE AMYLASE\PANCRELIPASE LIPASE\PANCRELIPASE PROTEASE
     Indication: Product used for unknown indication
     Route: 048

REACTIONS (8)
  - Colon cancer [Unknown]
  - Rectal injury [Unknown]
  - Pancreatic injury [Unknown]
  - Pain [Unknown]
  - Anorectal operation [Unknown]
  - Post procedural discharge [Unknown]
  - Colon injury [Unknown]
  - Bedridden [Unknown]
